FAERS Safety Report 5804920-2 (Version None)
Quarter: 2008Q3

REPORT INFORMATION
  Report Type: 
  Country: None (occurrence: None)
  Receive Date: 20080709
  Receipt Date: 20080701
  Transmission Date: 20090109
  Serious: Yes (Other)
  Sender: FDA-Public Use
  Company Number: PHHY2008BR12987

PATIENT
  Age: 79 Year
  Sex: Male
  Weight: 55 kg

DRUGS (9)
  1. FORASEQ [Suspect]
     Indication: BRONCHITIS
     Dosage: 12/400MCG, BID
     Dates: start: 20080101
  2. FORASEQ [Suspect]
     Indication: EMPHYSEMA
  3. PREDNISONE TAB [Concomitant]
     Indication: BRONCHITIS
     Dosage: 20MG
     Route: 048
     Dates: start: 20060101
  4. PREDNISONE TAB [Concomitant]
     Indication: EMPHYSEMA
  5. VITAMIN D [Concomitant]
     Indication: APPETITE DISORDER
     Dosage: 3 TABLET/DAY
     Route: 048
     Dates: start: 20080101
  6. BEROTEC [Concomitant]
     Indication: BRONCHITIS
     Dosage: 6 DRP, PRN
     Dates: start: 20080101
  7. BEROTEC [Concomitant]
     Indication: EMPHYSEMA
  8. ATROVENT [Concomitant]
     Indication: BRONCHITIS
     Dosage: 20 DRP, PRN
     Dates: start: 20080101
  9. ATROVENT [Concomitant]
     Indication: EMPHYSEMA

REACTIONS (7)
  - ANOREXIA [None]
  - CONDITION AGGRAVATED [None]
  - FEELING ABNORMAL [None]
  - GAIT DISTURBANCE [None]
  - INSOMNIA [None]
  - SUFFOCATION FEELING [None]
  - WEIGHT DECREASED [None]
